FAERS Safety Report 18575270 (Version 7)
Quarter: 2021Q3

REPORT INFORMATION
  Report Type: Spontaneous
  Country: US (occurrence: US)
  Receive Date: 20201203
  Receipt Date: 20210906
  Transmission Date: 20211014
  Serious: Yes (Other)
  Sender: FDA-Public Use
  Company Number: US-PFIZER INC-2019501606

PATIENT
  Age: 79 Year
  Sex: Female
  Weight: 86.18 kg

DRUGS (2)
  1. TOVIAZ [Suspect]
     Active Substance: FESOTERODINE FUMARATE
     Dosage: UNK
  2. TOVIAZ [Suspect]
     Active Substance: FESOTERODINE FUMARATE
     Indication: HYPERTONIC BLADDER
     Dosage: 8 MG, 1X/DAY
     Route: 048

REACTIONS (9)
  - Fatigue [Unknown]
  - Blindness [Unknown]
  - Dementia [Unknown]
  - Body height decreased [Unknown]
  - Confusional state [Unknown]
  - Weight decreased [Unknown]
  - Hypoacusis [Unknown]
  - Product dose omission issue [Unknown]
  - Stress [Unknown]
